FAERS Safety Report 24385369 (Version 5)
Quarter: 2024Q4

REPORT INFORMATION
  Report Type: Spontaneous
  Country: US (occurrence: US)
  Receive Date: 20241001
  Receipt Date: 20241022
  Transmission Date: 20250115
  Serious: No
  Sender: SANOFI AVENTIS
  Company Number: US-SANOFI-02227230

PATIENT
  Age: 57 Year
  Sex: Female
  Weight: 79.55 kg

DRUGS (2)
  1. DUPIXENT [Suspect]
     Active Substance: DUPILUMAB
     Indication: Dermatitis atopic
     Dosage: 300 MG, QOW
     Route: 058
     Dates: start: 202406, end: 2024
  2. DUPIXENT [Suspect]
     Active Substance: DUPILUMAB
     Indication: Illness

REACTIONS (13)
  - Disorientation [Unknown]
  - Thinking abnormal [Unknown]
  - Lethargy [Unknown]
  - Skin discolouration [Recovering/Resolving]
  - Nausea [Unknown]
  - Injection site haemorrhage [Unknown]
  - Injection site warmth [Unknown]
  - Injection site bruising [Recovering/Resolving]
  - Injection site swelling [Unknown]
  - Injection site erythema [Unknown]
  - Rash [Unknown]
  - Injection site reaction [Unknown]
  - Dizziness [Unknown]

NARRATIVE: CASE EVENT DATE: 20240101
